FAERS Safety Report 8310273-0 (Version None)
Quarter: 2012Q2

REPORT INFORMATION
  Report Type: 
  Country: None (occurrence: None)
  Receive Date: 20120425
  Receipt Date: 20120422
  Transmission Date: 20120825
  Serious: No
  Sender: FDA-Public Use
  Company Number: US-TEVA-334754USA

PATIENT
  Sex: Female
  Weight: 56.75 kg

DRUGS (3)
  1. SEASONIQUE [Concomitant]
     Indication: CONTRACEPTION
  2. RELPAX [Concomitant]
     Indication: MIGRAINE
     Dates: start: 20110101
  3. PLAN B ONE-STEP [Suspect]
     Indication: POST COITAL CONTRACEPTION
     Dosage: 1.5 MILLIGRAM;
     Route: 048
     Dates: start: 20120415, end: 20120415

REACTIONS (1)
  - PELVIC PAIN [None]
